FAERS Safety Report 20883515 (Version 3)
Quarter: 2024Q1

REPORT INFORMATION
  Report Type: Spontaneous
  Country: US (occurrence: US)
  Receive Date: 20220527
  Receipt Date: 20240222
  Transmission Date: 20240410
  Serious: No
  Sender: FDA-Public Use
  Company Number: US-BAYER-2022A068723

PATIENT
  Age: 57 Year
  Sex: Female

DRUGS (1)
  1. CLIMARA PRO [Suspect]
     Active Substance: ESTRADIOL\LEVONORGESTREL
     Indication: Hot flush
     Dosage: UNK
     Dates: start: 202204

REACTIONS (4)
  - Device adhesion issue [None]
  - Drug ineffective [None]
  - Hot flush [None]
  - Insomnia [None]

NARRATIVE: CASE EVENT DATE: 20220511
